FAERS Safety Report 16458796 (Version 1)
Quarter: 2019Q2

REPORT INFORMATION
  Report Type: Spontaneous
  Country: US (occurrence: US)
  Receive Date: 20190620
  Receipt Date: 20190620
  Transmission Date: 20190711
  Serious: No
  Sender: FDA-Public Use
  Company Number: US-THERAPEUTICSMD-2019TMD00833

PATIENT
  Sex: Female
  Weight: 63.49 kg

DRUGS (2)
  1. IMVEXXY [Suspect]
     Active Substance: ESTRADIOL
     Indication: DYSPAREUNIA
     Dosage: 10 ?G, 1X/DAY AT NIGHT
     Route: 067
     Dates: start: 2019, end: 2019
  2. IMVEXXY [Suspect]
     Active Substance: ESTRADIOL
     Dosage: 10 ?G, 2X/WEEK AT NIGHT
     Route: 067
     Dates: start: 2019, end: 2019

REACTIONS (4)
  - Drug ineffective [Recovered/Resolved]
  - Vulvovaginal discomfort [Recovered/Resolved]
  - Vulvovaginal mycotic infection [Recovered/Resolved]
  - Vaginal discharge [Recovered/Resolved]

NARRATIVE: CASE EVENT DATE: 2019
